FAERS Safety Report 17066874 (Version 2)
Quarter: 2020Q3

REPORT INFORMATION
  Report Type: Spontaneous
  Country: US (occurrence: US)
  Receive Date: 20191122
  Receipt Date: 20200910
  Transmission Date: 20201102
  Serious: Yes (Hospitalization, Other)
  Sender: FDA-Public Use
  Company Number: US-PFIZER INC-2019504229

PATIENT
  Age: 71 Year
  Sex: Male

DRUGS (5)
  1. VANCOMYCIN HCL [Suspect]
     Active Substance: VANCOMYCIN HYDROCHLORIDE
     Indication: STAPHYLOCOCCAL INFECTION
     Dosage: 1 GM/250ML, EVERY 12 HOUN.
     Route: 042
     Dates: start: 20180224
  2. VANCOMYCIN HCL [Suspect]
     Active Substance: VANCOMYCIN HYDROCHLORIDE
     Indication: EXTRADURAL ABSCESS
     Dosage: 1250 MG, 2X/DAY (EVERY 12 HOURS)
     Route: 042
     Dates: start: 20180202, end: 20180223
  3. VANCOMYCIN HCL [Suspect]
     Active Substance: VANCOMYCIN HYDROCHLORIDE
     Indication: OSTEOMYELITIS
     Dosage: 1 GM/250ML, EVERY 12 HOURS
     Route: 042
     Dates: start: 20180206, end: 20180222
  4. CIPRO [Concomitant]
     Active Substance: CIPROFLOXACIN HYDROCHLORIDE
     Dosage: UNK
     Route: 048
     Dates: start: 201802, end: 201802
  5. VANCOMYCIN HCL [Suspect]
     Active Substance: VANCOMYCIN HYDROCHLORIDE
     Indication: PYONEPHROSIS

REACTIONS (5)
  - Anaphylactic reaction [Unknown]
  - Weight decreased [Unknown]
  - Drug hypersensitivity [Unknown]
  - Drug intolerance [Unknown]
  - Decreased appetite [Unknown]

NARRATIVE: CASE EVENT DATE: 201802
